FAERS Safety Report 25679359 (Version 4)
Quarter: 2025Q3

REPORT INFORMATION
  Report Type: Spontaneous
  Country: MX (occurrence: MX)
  Receive Date: 20250814
  Receipt Date: 20250925
  Transmission Date: 20251020
  Serious: Yes (Other)
  Sender: CSL BEHRING
  Company Number: MX-BEH-2025215824

PATIENT

DRUGS (1)
  1. HIZENTRA [Suspect]
     Active Substance: HUMAN IMMUNOGLOBULIN G
     Indication: Product used for unknown indication
     Route: 065

REACTIONS (2)
  - Product distribution issue [Unknown]
  - Drug diversion [Unknown]
